FAERS Safety Report 11021139 (Version 1)
Quarter: 2015Q2

REPORT INFORMATION
  Report Type: Spontaneous
  Country: US (occurrence: US)
  Receive Date: 20150413
  Receipt Date: 20150413
  Transmission Date: 20150821
  Serious: Yes (Other)
  Sender: FDA-Public Use
  Company Number: US-ROCHE-1555210

PATIENT
  Age: 25 Year
  Sex: Female
  Weight: 104.42 kg

DRUGS (5)
  1. ORAPRED [Concomitant]
     Active Substance: PREDNISOLONE SODIUM PHOSPHATE
  2. PEPCID [Concomitant]
     Active Substance: FAMOTIDINE
  3. CLARITIN [Concomitant]
     Active Substance: LORATADINE
  4. XOLAIR [Suspect]
     Active Substance: OMALIZUMAB
     Indication: IDIOPATHIC URTICARIA
     Route: 058
     Dates: start: 20150331
  5. XOLAIR [Suspect]
     Active Substance: OMALIZUMAB
     Route: 058

REACTIONS (3)
  - Urticaria [Recovered/Resolved]
  - Weight increased [Unknown]
  - Nausea [Recovered/Resolved]

NARRATIVE: CASE EVENT DATE: 20150331
